FAERS Safety Report 7557525-X (Version None)
Quarter: 2011Q2

REPORT INFORMATION
  Report Type: 
  Country: None (occurrence: None)
  Receive Date: 20110613
  Receipt Date: 20110601
  Transmission Date: 20111010
  Serious: Yes (Hospitalization)
  Sender: FDA-Public Use
  Company Number: 2009AC000050

PATIENT
  Age: 71 Year
  Sex: Female

DRUGS (38)
  1. DIGOXIN [Suspect]
     Indication: ATRIAL FIBRILLATION
     Dosage: 0.125 MG;QD;PO
     Route: 048
     Dates: start: 20050318, end: 20080424
  2. SOTALOL HCL [Concomitant]
  3. PROTONIX [Concomitant]
  4. TOPROL-XL [Concomitant]
  5. CLONIDINE [Concomitant]
  6. PHENERGAN HCL [Concomitant]
  7. KEFLEX [Concomitant]
  8. IMDUR [Concomitant]
  9. ALBUTEROL SULFATE AUTOHALER [Concomitant]
  10. COUMADIN [Concomitant]
  11. LOPRESSOR [Concomitant]
  12. DARVOCET [Concomitant]
  13. METOPROLOL TARTRATE [Concomitant]
  14. NITROGLYCERIN [Concomitant]
  15. AMIODARONE HCL [Concomitant]
  16. ZOFRAN [Concomitant]
  17. DEMEROL [Concomitant]
  18. LOVENOX [Concomitant]
  19. CIPROFLOXACIN HCL [Concomitant]
  20. LORTAB [Concomitant]
  21. PLENDIL [Concomitant]
  22. FLEXERIL [Concomitant]
  23. DEPO-MEDROL [Concomitant]
  24. ADVAIR DISKUS 100/50 [Concomitant]
  25. RELAFEN [Concomitant]
  26. VERAMYST [Concomitant]
  27. DIGOXIN [Suspect]
     Dosage: 0.5 MG;QD;PO
     Route: 048
     Dates: start: 20080301, end: 20080318
  28. NORVASC [Concomitant]
  29. DILTIAZEM [Concomitant]
  30. PERCOCET [Concomitant]
  31. POTASSIUM CHLORIDE [Concomitant]
  32. DIOVAN [Concomitant]
  33. AMLODIPINE [Concomitant]
  34. CARTIA XT [Concomitant]
  35. VASOTEC [Concomitant]
  36. LEVAQUIN [Concomitant]
  37. MUCINEX [Concomitant]
  38. NAPROXEN (ALEVE) [Concomitant]

REACTIONS (35)
  - FALL [None]
  - VOMITING [None]
  - AORTIC VALVE INCOMPETENCE [None]
  - NECK PAIN [None]
  - ANXIETY [None]
  - CARDIAC FAILURE [None]
  - MUSCLE SPASMS [None]
  - ASTHENIA [None]
  - NAUSEA [None]
  - TRICUSPID VALVE INCOMPETENCE [None]
  - CERVICAL SPINAL STENOSIS [None]
  - VISION BLURRED [None]
  - ECONOMIC PROBLEM [None]
  - PAIN [None]
  - COMPRESSION FRACTURE [None]
  - CARDIAC FLUTTER [None]
  - ATRIAL FIBRILLATION [None]
  - ACCIDENT [None]
  - HEADACHE [None]
  - SYNCOPE [None]
  - HEART RATE IRREGULAR [None]
  - LUMBAR VERTEBRAL FRACTURE [None]
  - DYSPNOEA [None]
  - CHEST DISCOMFORT [None]
  - DIZZINESS [None]
  - PULMONARY HYPERTENSION [None]
  - DIVERTICULUM [None]
  - MULTIPLE INJURIES [None]
  - DIARRHOEA [None]
  - SPINAL OSTEOARTHRITIS [None]
  - BLOOD PRESSURE INCREASED [None]
  - HYPOKALAEMIA [None]
  - LOSS OF CONSCIOUSNESS [None]
  - MITRAL VALVE INCOMPETENCE [None]
  - PLEURAL EFFUSION [None]
